FAERS Safety Report 4660711-X (Version None)
Quarter: 2005Q2

REPORT INFORMATION
  Report Type: 
  Country: None (occurrence: None)
  Receive Date: 20050512
  Receipt Date: 20050218
  Transmission Date: 20051028
  Serious: Yes (Hospitalization, Other)
  Sender: FDA-Public Use
  Company Number: US-MERCK-0502USA02670

PATIENT
  Age: 65 Year
  Sex: Male
  Weight: 115 kg

DRUGS (6)
  1. VIOXX [Suspect]
     Indication: ARTHRALGIA
     Route: 048
     Dates: start: 20020101, end: 20040901
  2. ECOTRIN [Concomitant]
     Route: 065
     Dates: start: 20020101
  3. ZOCOR [Concomitant]
     Route: 065
     Dates: start: 20030101
  4. BENICAR [Concomitant]
     Route: 065
  5. HYDROCHLOROTHIAZIDE [Concomitant]
     Route: 065
  6. ALEVE [Concomitant]
     Route: 065
     Dates: start: 20020101

REACTIONS (7)
  - CAROTID ARTERY STENOSIS [None]
  - CEREBRAL INFARCTION [None]
  - COLONIC POLYP [None]
  - DEAFNESS [None]
  - HYPOAESTHESIA [None]
  - MEMORY IMPAIRMENT [None]
  - TRANSIENT ISCHAEMIC ATTACK [None]
